FAERS Safety Report 9208296 (Version 2)
Quarter: 2013Q2

REPORT INFORMATION
  Report Type: Report from Study
  Country: FR (occurrence: FR)
  Receive Date: 20130403
  Receipt Date: 20130419
  Transmission Date: 20140414
  Serious: Yes (Death)
  Sender: FDA-Public Use
  Company Number: FR-PFIZER INC-2013098575

PATIENT
  Age: 68 Year
  Sex: Female
  Weight: 42 kg

DRUGS (4)
  1. TEMSIROLIMUS [Suspect]
     Indication: MANTLE CELL LYMPHOMA
     Dosage: 25 MG, 1X/DAY (DAILY)
     Dates: start: 20120223, end: 20120307
  2. RITUXIMAB [Concomitant]
     Indication: LYMPHOMA
     Dosage: UNK
     Dates: start: 20120222, end: 20120224
  3. FLUDARABINE [Concomitant]
     Indication: LYMPHOMA
     Dosage: UNK
     Dates: start: 20120222, end: 20120224
  4. CYCLOPHOSPHAMIDE [Concomitant]
     Indication: LYMPHOMA
     Dosage: UNK
     Dates: start: 20120222, end: 20120224

REACTIONS (2)
  - Disease progression [Fatal]
  - Mantle cell lymphoma [Fatal]
